FAERS Safety Report 6314742-4 (Version None)
Quarter: 2009Q3

REPORT INFORMATION
  Report Type: 
  Country: None (occurrence: None)
  Receive Date: 20090817
  Receipt Date: 20090807
  Transmission Date: 20100115
  Serious: Yes (Life-Threatening)
  Sender: FDA-Public Use
  Company Number: ENT 2009-0132

PATIENT
  Age: 60 Year
  Sex: Female

DRUGS (11)
  1. COMTAN [Suspect]
     Indication: PARKINSON'S DISEASE
     Dosage: 200 MG, 5QD ORAL; 1000 MG (200 MG, 5 IN 1 D) ORAL
     Route: 048
     Dates: start: 20090512
  2. COMTAN [Suspect]
     Indication: PARKINSON'S DISEASE
     Dosage: 200 MG, 5QD ORAL; 1000 MG (200 MG, 5 IN 1 D) ORAL
     Route: 048
     Dates: start: 20090728
  3. MADOPAR [Concomitant]
  4. MIRTAZAPINE [Concomitant]
  5. BUPRENORPHINE HCL [Concomitant]
  6. LIPITOR [Concomitant]
  7. SOTALOL HCL [Concomitant]
  8. SYMMETREL [Concomitant]
  9. AVAPRO [Concomitant]
  10. ALPHAPRESS [Concomitant]
  11. FOSAMAX [Concomitant]

REACTIONS (4)
  - CONDITION AGGRAVATED [None]
  - FEELING ABNORMAL [None]
  - SUICIDAL IDEATION [None]
  - TREMOR [None]
